FAERS Safety Report 11412294 (Version 1)
Quarter: 2015Q3

REPORT INFORMATION
  Report Type: Spontaneous
  Country: US (occurrence: US)
  Receive Date: 20150824
  Receipt Date: 20150824
  Transmission Date: 20151125
  Serious: No
  Sender: FDA-Public Use
  Company Number: US-JNJFOC-20150800466

PATIENT
  Age: 66 Year
  Sex: Female
  Weight: 67.59 kg

DRUGS (2)
  1. MENS ROGAINE EXTRA STRENGTH [Suspect]
     Active Substance: MINOXIDIL
     Route: 061
  2. MENS ROGAINE EXTRA STRENGTH [Suspect]
     Active Substance: MINOXIDIL
     Indication: ALOPECIA
     Dosage: GOLF BALL SIZE ALL OVER
     Route: 061

REACTIONS (2)
  - Wrong patient received medication [Recovering/Resolving]
  - Alopecia [Recovering/Resolving]
